FAERS Safety Report 5143467-6 (Version None)
Quarter: 2006Q4

REPORT INFORMATION
  Report Type: 
  Country: None (occurrence: None)
  Receive Date: 20061103
  Receipt Date: 20060725
  Transmission Date: 20070319
  Serious: Yes (Hospitalization, Disabling)
  Sender: FDA-Public Use
  Company Number: 2006UW15110

PATIENT
  Age: 46 Year
  Sex: Female

DRUGS (6)
  1. SEROQUEL [Suspect]
     Indication: SLEEP DISORDER THERAPY
     Dosage: 25 TO 600 MG
     Route: 048
     Dates: start: 20030528, end: 20060531
  2. SEROQUEL [Suspect]
     Indication: BIPOLAR DISORDER
     Dosage: 25 TO 600 MG
     Route: 048
     Dates: start: 20030528, end: 20060531
  3. ABILIFY [Suspect]
     Indication: BIPOLAR DISORDER
     Dates: start: 20031105, end: 20060531
  4. EFFEXOR XR [Concomitant]
     Indication: BIPOLAR DISORDER
     Route: 048
     Dates: start: 19990910, end: 20060901
  5. PROVIGIL [Concomitant]
  6. WELLBUTRIN XL [Concomitant]
     Indication: BIPOLAR DISORDER
     Route: 048
     Dates: start: 20060801, end: 20060901

REACTIONS (2)
  - CARDIAC DISORDER [None]
  - TARDIVE DYSKINESIA [None]
